FAERS Safety Report 12662559 (Version 1)
Quarter: 2016Q3

REPORT INFORMATION
  Report Type: Spontaneous
  Country: FR (occurrence: FR)
  Receive Date: 20160818
  Receipt Date: 20160818
  Transmission Date: 20161109
  Serious: Yes (Hospitalization)
  Sender: FDA-Public Use
  Company Number: FR-ASTRAZENECA-2016SE88308

PATIENT
  Age: 50 Year
  Sex: Male

DRUGS (4)
  1. ONGLYZA [Suspect]
     Active Substance: SAXAGLIPTIN HYDROCHLORIDE
     Indication: DIABETES MELLITUS
     Dosage: 5.0MG UNKNOWN
     Route: 048
     Dates: start: 2015
  2. PERINDOPRIL [Concomitant]
     Active Substance: PERINDOPRIL
     Dosage: 4.0MG UNKNOWN
  3. GLIMEPIRIDE. [Concomitant]
     Active Substance: GLIMEPIRIDE
     Dosage: 2.0MG UNKNOWN
  4. METFORMINE [Concomitant]
     Active Substance: METFORMIN HYDROCHLORIDE
     Dosage: 850.0MG UNKNOWN

REACTIONS (1)
  - Pancreatitis chronic [Recovering/Resolving]

NARRATIVE: CASE EVENT DATE: 20160721
